FAERS Safety Report 8369023-4 (Version None)
Quarter: 2012Q2

REPORT INFORMATION
  Report Type: 
  Country: None (occurrence: None)
  Receive Date: 20120518
  Receipt Date: 20120515
  Transmission Date: 20120825
  Serious: No
  Sender: FDA-Public Use
  Company Number: US-PFIZER INC-2012101678

PATIENT
  Sex: Female

DRUGS (5)
  1. LYRICA [Suspect]
     Indication: PAIN
     Dosage: 25 MG, 1X/DAY
     Dates: start: 20120101, end: 20120101
  2. LYRICA [Suspect]
     Dosage: 50 MG, 1X/DAY
     Dates: start: 20120101, end: 20120101
  3. LYRICA [Suspect]
     Indication: EHLERS-DANLOS SYNDROME
     Dosage: 25 MG, 3X/DAY
     Dates: start: 20120301, end: 20120101
  4. LYRICA [Suspect]
     Dosage: UNK
  5. LYRICA [Suspect]
     Dosage: 75 MG, 1X/DAY
     Dates: start: 20120101

REACTIONS (2)
  - VOMITING [None]
  - MIGRAINE [None]
